FAERS Safety Report 23157366 (Version 5)
Quarter: 2024Q1

REPORT INFORMATION
  Report Type: Spontaneous
  Country: CA (occurrence: CA)
  Receive Date: 20231108
  Receipt Date: 20240103
  Transmission Date: 20240409
  Serious: Yes (Hospitalization, Other)
  Sender: FDA-Public Use
  Company Number: CA-CELLTRION INC.-2023CA021529

PATIENT

DRUGS (2)
  1. INFLECTRA [Suspect]
     Active Substance: INFLIXIMAB-DYYB
     Indication: Crohn^s disease
     Dosage: 400 MG (10 MG/KG) HOSPITAL START
     Route: 042
     Dates: start: 20231027, end: 20231027
  2. PREDNISONE [Concomitant]
     Active Substance: PREDNISONE
     Dosage: 50 MG, DAILY

REACTIONS (5)
  - Productive cough [Not Recovered/Not Resolved]
  - Tooth disorder [Unknown]
  - COVID-19 [Recovering/Resolving]
  - Dysphonia [Not Recovered/Not Resolved]
  - Off label use [Unknown]

NARRATIVE: CASE EVENT DATE: 20230101
